FAERS Safety Report 19949993 (Version 1)
Quarter: 2021Q4

REPORT INFORMATION
  Report Type: Spontaneous
  Country: US (occurrence: US)
  Receive Date: 20211013
  Receipt Date: 20211013
  Transmission Date: 20220303
  Serious: Yes (Other)
  Sender: FDA-Public Use
  Company Number: None

PATIENT
  Age: 41 Year
  Sex: Male
  Weight: 99 kg

DRUGS (1)
  1. REGEN-COV [Suspect]
     Active Substance: CASIRIVIMAB\IMDEVIMAB
     Indication: COVID-19
     Dosage: ?          OTHER FREQUENCY:1 TIME INFUSION;
     Route: 042
     Dates: start: 20210913, end: 20210913

REACTIONS (4)
  - Rash [None]
  - Rash papular [None]
  - Rash papular [None]
  - Infusion related reaction [None]

NARRATIVE: CASE EVENT DATE: 20210913
